FAERS Safety Report 17230855 (Version 8)
Quarter: 2020Q4

REPORT INFORMATION
  Report Type: Report from Study
  Country: AU (occurrence: AU)
  Receive Date: 20200103
  Receipt Date: 20201207
  Transmission Date: 20210113
  Serious: Yes (Other)
  Sender: FDA-Public Use
  Company Number: AU-PFIZER INC-2019560302

PATIENT
  Age: 66 Year
  Sex: Male
  Weight: 84.4 kg

DRUGS (13)
  1. METHOTREXATE. [Suspect]
     Active Substance: METHOTREXATE
     Dosage: 10 MG/M2, 1X/DAY (GIVEN ON DAYS 1, 3, 6 AND 11 POST HSCT)
     Route: 040
     Dates: start: 20191223, end: 20191223
  2. PLACEBO [Suspect]
     Active Substance: UNSPECIFIED INGREDIENT
     Indication: ACUTE MYELOID LEUKAEMIA
     Dosage: ONCE DAILY CONTINUOUS
     Route: 048
     Dates: start: 20190904, end: 20191203
  3. DAUNORUBICIN HCL [Suspect]
     Active Substance: DAUNORUBICIN HYDROCHLORIDE
     Indication: ACUTE MYELOID LEUKAEMIA
     Dosage: 121 MG, DAILY BY CONTINUOUS INFUSION, INDUCTION
     Route: 041
     Dates: start: 20190904, end: 20190906
  4. VORICONAZOLE. [Suspect]
     Active Substance: VORICONAZOLE
     Indication: ANTIVIRAL PROPHYLAXIS
     Dosage: 200 MG, 1X/DAY
     Route: 040
     Dates: start: 20191220, end: 20191220
  5. CYCLOSPORINE. [Suspect]
     Active Substance: CYCLOSPORINE
     Indication: PROPHYLAXIS
     Dosage: 140 MG, 2X/DAY
     Route: 040
     Dates: start: 20191219, end: 20191225
  6. VORICONAZOLE. [Suspect]
     Active Substance: VORICONAZOLE
     Dosage: 200 MG, 1X/DAY
     Route: 040
     Dates: start: 20191226, end: 20191226
  7. METHOTREXATE. [Suspect]
     Active Substance: METHOTREXATE
     Indication: PROPHYLAXIS
     Dosage: 15 MG/M2, 1X/DAY (GIVEN ON DAYS 1, 3, 6 AND 11 POST HSCT)
     Route: 040
     Dates: start: 20191213, end: 20191213
  8. CYTARABINE. [Suspect]
     Active Substance: CYTARABINE
     Dosage: 2.010 G, 2X/DAY CONSOLIDATION WITH SINGLE-AGENT CYTARABINE OVER 3 HOURS DAYS 1,3,5
     Route: 042
     Dates: start: 20191010, end: 20191015
  9. CYCLOSPORINE. [Suspect]
     Active Substance: CYCLOSPORINE
     Dosage: 140 MG, 1X/DAY
     Route: 040
     Dates: start: 20191226, end: 20191226
  10. VORICONAZOLE. [Suspect]
     Active Substance: VORICONAZOLE
     Dosage: 200 MG, 2X/DAY
     Route: 040
     Dates: start: 20191221, end: 20191225
  11. METHOTREXATE. [Suspect]
     Active Substance: METHOTREXATE
     Dosage: 10 MG/M2, 1X/DAY (GIVEN ON DAYS 1, 3, 6 AND 11 POST HSCT)
     Route: 040
     Dates: start: 20191215, end: 20191215
  12. METHOTREXATE. [Suspect]
     Active Substance: METHOTREXATE
     Dosage: 10 MG/M2, 1X/DAY (GIVEN ON DAYS 1, 3, 6 AND 11 POST HSCT)
     Route: 040
     Dates: start: 20191218, end: 20191218
  13. CYTARABINE. [Suspect]
     Active Substance: CYTARABINE
     Indication: ACUTE MYELOID LEUKAEMIA
     Dosage: 201 MG, DAILY BY CONTINUOUS INFUSION , INDUCTION
     Route: 041
     Dates: start: 20190904, end: 20190911

REACTIONS (1)
  - Blood bilirubin increased [Recovered/Resolved]

NARRATIVE: CASE EVENT DATE: 20191226
